FAERS Safety Report 4999122-6 (Version None)
Quarter: 2006Q2

REPORT INFORMATION
  Report Type: 
  Country: None (occurrence: None)
  Receive Date: 20060509
  Receipt Date: 20060421
  Transmission Date: 20061013
  Serious: Yes (Other)
  Sender: FDA-Public Use
  Company Number: US200604003743

PATIENT
  Age: 42 Year
  Sex: Female

DRUGS (4)
  1. PROZAC [Suspect]
     Indication: DEPRESSION
     Dosage: 20 MG, DAILY (1/D), ORAL
     Route: 048
     Dates: start: 19881001
  2. DURAGESIC-100 [Concomitant]
  3. KLONOPIN [Concomitant]
  4. ATIVAN [Concomitant]

REACTIONS (3)
  - DRUG DEPENDENCE [None]
  - NERVOUSNESS [None]
  - SEXUAL ASSAULT VICTIM [None]
